FAERS Safety Report 18544893 (Version 1)
Quarter: 2020Q4

REPORT INFORMATION
  Report Type: Spontaneous
  Country: US (occurrence: US)
  Receive Date: 20201125
  Receipt Date: 20201125
  Transmission Date: 20210114
  Serious: No
  Sender: FDA-Public Use
  Company Number: US-AMGEN-USASP2020188935

PATIENT
  Age: 7 Year
  Sex: Female

DRUGS (4)
  1. OTEZLA [Suspect]
     Active Substance: APREMILAST
     Indication: DERMATITIS ATOPIC
     Dosage: STARTER PACK
     Route: 065
     Dates: start: 2020, end: 202011
  2. OTEZLA [Suspect]
     Active Substance: APREMILAST
     Dosage: SPLIT THE 30 MG TABLETS IN HALF TO HOPEFULLY YIELD AROUND A 15 MG DOSE
     Route: 065
     Dates: start: 202011, end: 202011
  3. OTEZLA [Suspect]
     Active Substance: APREMILAST
     Dosage: 30 MILLIGRAM, BID
     Route: 065
     Dates: start: 202011, end: 202011
  4. OTEZLA [Suspect]
     Active Substance: APREMILAST
     Dosage: 30 MILLIGRAM, QD
     Route: 065
     Dates: start: 202011, end: 202011

REACTIONS (2)
  - Off label use [Unknown]
  - Vomiting [Not Recovered/Not Resolved]

NARRATIVE: CASE EVENT DATE: 2020
